FAERS Safety Report 7778545-6 (Version None)
Quarter: 2011Q3

REPORT INFORMATION
  Report Type: 
  Country: None (occurrence: None)
  Receive Date: 20110922
  Receipt Date: 20110906
  Transmission Date: 20111222
  Serious: Yes (Other)
  Sender: FDA-Public Use
  Company Number: AUR-APL-2011-04980

PATIENT
  Age: 51 Year
  Sex: Male

DRUGS (1)
  1. CITALOPRAM HYDROBROMIDE [Suspect]
     Indication: PRODUCT USED FOR UNKNOWN INDICATION

REACTIONS (13)
  - PYREXIA [None]
  - DISTURBANCE IN ATTENTION [None]
  - UNEVALUABLE EVENT [None]
  - TREMOR [None]
  - INSOMNIA [None]
  - HYPOGEUSIA [None]
  - MOVEMENT DISORDER [None]
  - VISION BLURRED [None]
  - MUSCLE RIGIDITY [None]
  - AGITATION [None]
  - PANIC ATTACK [None]
  - DEPRESSION [None]
  - APATHY [None]
